FAERS Safety Report 10183963 (Version 1)
Quarter: 2014Q2

REPORT INFORMATION
  Report Type: Spontaneous
  Country: US (occurrence: US)
  Receive Date: 20140520
  Receipt Date: 20140520
  Transmission Date: 20141212
  Serious: Yes (Hospitalization)
  Sender: FDA-Public Use
  Company Number: US-GLAXOSMITHKLINE-A1073323A

PATIENT
  Age: 74 Year
  Sex: Female

DRUGS (18)
  1. ADVAIR HFA [Suspect]
     Indication: RESPIRATORY DISORDER
     Dosage: 1PUFF TWICE PER DAY
     Route: 055
     Dates: start: 2000
  2. VENTOLIN [Suspect]
     Indication: ASTHMA
     Route: 065
  3. UNSPECIFIED MEDICATION [Suspect]
     Indication: PRODUCT USED FOR UNKNOWN INDICATION
     Route: 008
  4. SINGULAIR [Concomitant]
  5. ZYRTEC [Concomitant]
  6. PANTOPRAZOLE [Concomitant]
  7. PERCOCET [Concomitant]
  8. PROZAC [Concomitant]
  9. PIOGLITAZONE [Concomitant]
  10. AMOXICLAV [Concomitant]
  11. XANAX [Concomitant]
  12. VITAMIN D [Concomitant]
  13. LOSARTAN [Concomitant]
  14. LIDOCAINE [Concomitant]
  15. NABUMETONE [Concomitant]
  16. VERAPAMIL [Concomitant]
  17. MECLIZINE [Concomitant]
  18. PHENERGAN [Concomitant]

REACTIONS (10)
  - Surgery [Unknown]
  - Back pain [Unknown]
  - Cough [Unknown]
  - Eye disorder [Unknown]
  - Visual acuity reduced [Unknown]
  - Pain [Unknown]
  - Back injury [Unknown]
  - Intervertebral disc degeneration [Unknown]
  - Intervertebral disc protrusion [Unknown]
  - Therapeutic response decreased [Unknown]
